FAERS Safety Report 5908867-2 (Version None)
Quarter: 2008Q4

REPORT INFORMATION
  Report Type: 
  Country: None (occurrence: None)
  Receive Date: 20081001
  Receipt Date: 20080921
  Transmission Date: 20090506
  Serious: Yes (Hospitalization)
  Sender: FDA-Public Use
  Company Number: FABR-1000436

PATIENT
  Age: 53 Year
  Sex: Male

DRUGS (1)
  1. FABRAZYME [Suspect]
     Indication: FABRY'S DISEASE
     Dosage: 65 MG, Q2W,INTRAVENOUS
     Route: 042
     Dates: start: 20021120

REACTIONS (5)
  - CELLULITIS [None]
  - MALAISE [None]
  - RENAL FAILURE ACUTE [None]
  - STREPTOCOCCAL BACTERAEMIA [None]
  - VENTRICULAR TACHYCARDIA [None]
